FAERS Safety Report 25995845 (Version 1)
Quarter: 2025Q4

REPORT INFORMATION
  Report Type: Spontaneous
  Country: EU (occurrence: None)
  Receive Date: 20251104
  Receipt Date: 20251104
  Transmission Date: 20260118
  Serious: Yes (Other)
  Sender: UCB
  Company Number: EU-UCBSA-2025068036

PATIENT
  Age: 35 Year

DRUGS (12)
  1. LACOSAMIDE [Suspect]
     Active Substance: LACOSAMIDE
     Indication: Product used for unknown indication
     Dosage: 200 MILLIGRAM, UNK
  2. LACOSAMIDE [Suspect]
     Active Substance: LACOSAMIDE
     Dosage: 200 MILLIGRAM, UNK
  3. OXCARBAZEPINE [Concomitant]
     Active Substance: OXCARBAZEPINE
     Indication: Product used for unknown indication
     Dosage: UNK
  4. EZOGABINE [Concomitant]
     Active Substance: EZOGABINE
     Indication: Product used for unknown indication
     Dosage: UNK
  5. CLOBAZAM [Concomitant]
     Active Substance: CLOBAZAM
     Indication: Product used for unknown indication
     Dosage: UNK
  6. VALPROIC ACID [Concomitant]
     Active Substance: VALPROIC ACID
     Indication: Product used for unknown indication
     Dosage: UNK
  7. LEVETIRACETAM [Concomitant]
     Active Substance: LEVETIRACETAM
     Indication: Product used for unknown indication
     Dosage: UNK
  8. BRIVARACETAM [Concomitant]
     Active Substance: BRIVARACETAM
     Indication: Product used for unknown indication
     Dosage: UNK
  9. ZONISAMIDE [Concomitant]
     Active Substance: ZONISAMIDE
     Indication: Product used for unknown indication
     Dosage: UNK
  10. RUFINAMIDE [Concomitant]
     Active Substance: RUFINAMIDE
     Indication: Product used for unknown indication
     Dosage: UNK
  11. TOPIRAMATE [Concomitant]
     Active Substance: TOPIRAMATE
     Indication: Product used for unknown indication
     Dosage: UNK
  12. PERAMPANEL [Concomitant]
     Active Substance: PERAMPANEL
     Indication: Product used for unknown indication
     Dosage: UNK

REACTIONS (14)
  - Seizure [Unknown]
  - Hallucination, visual [Unknown]
  - Immobile [Unknown]
  - Leukopenia [Unknown]
  - Catheter site infection [Unknown]
  - Petit mal epilepsy [Unknown]
  - Status epilepticus [Unknown]
  - Gastrostomy [Unknown]
  - Aggression [Unknown]
  - Abnormal behaviour [Unknown]
  - Atonic seizures [Unknown]
  - Mental disorder [Unknown]
  - Behaviour disorder [Unknown]
  - Sleep disorder [Unknown]
